FAERS Safety Report 9786607 (Version 1)
Quarter: 2013Q4

REPORT INFORMATION
  Report Type: Spontaneous
  Country: US (occurrence: US)
  Receive Date: 20131227
  Receipt Date: 20131227
  Transmission Date: 20140711
  Serious: Yes (Other)
  Sender: FDA-Public Use
  Company Number: PHHY2013US149603

PATIENT
  Age: 61 Year
  Sex: Male

DRUGS (4)
  1. CISPLATIN [Suspect]
     Indication: HODGKIN^S DISEASE
  2. DEXAMETHASONE [Suspect]
     Indication: HODGKIN^S DISEASE
  3. CYTARABINE [Suspect]
     Indication: HODGKIN^S DISEASE
  4. GEMCITABINE [Concomitant]
     Indication: HODGKIN^S DISEASE

REACTIONS (3)
  - Pancytopenia [Unknown]
  - Autonomic neuropathy [Unknown]
  - Syncope [Unknown]
